FAERS Safety Report 5939825-X (Version None)
Quarter: 2008Q4

REPORT INFORMATION
  Report Type: 
  Country: None (occurrence: None)
  Receive Date: 20081031
  Receipt Date: 20081031
  Transmission Date: 20090506
  Serious: Yes (Other)
  Sender: FDA-Public Use
  Company Number: None

PATIENT
  Age: 68 Year
  Sex: Female
  Weight: 58.9676 kg

DRUGS (1)
  1. OXYCODONE 80 MG ER MALLINO [Suspect]
     Indication: PAIN
     Dosage: 1 TABLET 3X DAILY PO
     Route: 048
     Dates: start: 20081029, end: 20081029

REACTIONS (11)
  - DEHYDRATION [None]
  - DIARRHOEA [None]
  - DRUG INEFFECTIVE [None]
  - HYPERHIDROSIS [None]
  - MENTAL DISORDER [None]
  - PAIN [None]
  - POOR QUALITY DRUG ADMINISTERED [None]
  - PRODUCT QUALITY ISSUE [None]
  - THERAPEUTIC RESPONSE UNEXPECTED WITH DRUG SUBSTITUTION [None]
  - TREMOR [None]
  - WITHDRAWAL SYNDROME [None]
